FAERS Safety Report 6530978-1 (Version None)
Quarter: 2010Q1

REPORT INFORMATION
  Report Type: 
  Country: None (occurrence: None)
  Receive Date: 20100108
  Receipt Date: 20090804
  Transmission Date: 20100710
  Serious: No
  Sender: FDA-Public Use
  Company Number: A0800437A

PATIENT
  Age: 59 Year
  Sex: Male

DRUGS (4)
  1. LOVAZA [Suspect]
     Route: 048
     Dates: start: 20090601
  2. MICARDIS [Concomitant]
  3. SIMVASTATIN [Concomitant]
  4. OXCARBAZEPINE [Concomitant]

REACTIONS (1)
  - ERUCTATION [None]
